FAERS Safety Report 7074265-4 (Version None)
Quarter: 2010Q4

REPORT INFORMATION
  Report Type: 
  Country: None (occurrence: None)
  Receive Date: 20101029
  Receipt Date: 20101021
  Transmission Date: 20110411
  Serious: Yes (Other)
  Sender: FDA-Public Use
  Company Number: US-US-EMD SERONO, INC.-232715J10USA

PATIENT
  Sex: Female

DRUGS (11)
  1. REBIF [Suspect]
     Indication: MULTIPLE SCLEROSIS
     Dates: start: 20060401, end: 20061201
  2. REBIF [Suspect]
     Route: 058
     Dates: start: 20100211, end: 20100301
  3. REBIF [Suspect]
     Route: 058
     Dates: start: 20100301, end: 20100301
  4. REBIF [Suspect]
     Route: 058
     Dates: start: 20100315, end: 20100101
  5. REBIF [Suspect]
     Route: 058
     Dates: start: 20100101, end: 20100101
  6. REBIF [Suspect]
     Route: 058
     Dates: start: 20100101, end: 20100101
  7. VALIUM [Concomitant]
  8. CYMBALTA [Concomitant]
     Indication: ANXIETY
     Dates: start: 20100201
  9. CYMBALTA [Concomitant]
     Indication: DEPRESSION
  10. LORAZEPAM [Concomitant]
     Indication: ANXIETY
  11. LORAZEPAM [Concomitant]
     Indication: DEPRESSION

REACTIONS (11)
  - DYSPNOEA EXERTIONAL [None]
  - FALL [None]
  - FATIGUE [None]
  - FEELING ABNORMAL [None]
  - INJECTION SITE ERYTHEMA [None]
  - INJECTION SITE HAEMATOMA [None]
  - INJECTION SITE PAIN [None]
  - MALIGNANT OLIGODENDROGLIOMA [None]
  - MUSCULAR WEAKNESS [None]
  - PAIN IN EXTREMITY [None]
  - POLLAKIURIA [None]
